FAERS Safety Report 18602217 (Version 2)
Quarter: 2020Q4

REPORT INFORMATION
  Report Type: Report from Study
  Country: US (occurrence: US)
  Receive Date: 20201210
  Receipt Date: 20201223
  Transmission Date: 20210114
  Serious: Yes (Hospitalization)
  Sender: FDA-Public Use
  Company Number: US-EISAI MEDICAL RESEARCH-EC-2020-085080

PATIENT
  Age: 60 Year
  Sex: Female

DRUGS (9)
  1. MORPHINE [Concomitant]
     Active Substance: MORPHINE
  2. CORICIDIN [Concomitant]
     Dosage: 2-15-500 MG TB CP SEQ
  3. LENVIMA [Suspect]
     Active Substance: LENVATINIB
     Dosage: REDUCED DOSE AND FREQUENCY
     Route: 048
     Dates: start: 2020
  4. ONDANSETRON [Concomitant]
     Active Substance: ONDANSETRON
  5. LENVIMA [Suspect]
     Active Substance: LENVATINIB
     Indication: ENDOMETRIAL CANCER
     Route: 048
     Dates: start: 201911, end: 2020
  6. PROCHLORPERAZINE. [Concomitant]
     Active Substance: PROCHLORPERAZINE
  7. OXYCODONE [Concomitant]
     Active Substance: OXYCODONE
  8. ATORVASTATIN [Concomitant]
     Active Substance: ATORVASTATIN
  9. AMLODIPINE [Concomitant]
     Active Substance: AMLODIPINE BESYLATE

REACTIONS (4)
  - Headache [Unknown]
  - Chest pain [Unknown]
  - Blood cholesterol increased [Unknown]
  - Hypertension [Recovering/Resolving]

NARRATIVE: CASE EVENT DATE: 202012
